FAERS Safety Report 22305451 (Version 2)
Quarter: 2023Q2

REPORT INFORMATION
  Report Type: Spontaneous
  Country: US (occurrence: US)
  Receive Date: 20230510
  Receipt Date: 20230626
  Transmission Date: 20230721
  Serious: Yes (Other)
  Sender: FDA-Public Use
  Company Number: US-BRISTOL-MYERS SQUIBB COMPANY-2023-066507

PATIENT
  Age: 30 Year
  Sex: Female

DRUGS (1)
  1. SOTYKTU [Suspect]
     Active Substance: DEUCRAVACITINIB
     Indication: Psoriasis
     Dosage: DOSE: UNAVAILABLE; FREQ : TAKE 1 TABLET BY MOUTH ONCE DAILY
     Route: 048
     Dates: start: 20230310, end: 20230406

REACTIONS (6)
  - Hypersensitivity [Unknown]
  - Swelling of eyelid [Recovered/Resolved]
  - Pharyngeal swelling [Recovered/Resolved]
  - Acne [Recovered/Resolved]
  - Pruritus [Unknown]
  - Laryngeal oedema [Unknown]

NARRATIVE: CASE EVENT DATE: 20230406
